FAERS Safety Report 13617077 (Version 1)
Quarter: 2017Q2

REPORT INFORMATION
  Report Type: Spontaneous
  Country: US (occurrence: US)
  Receive Date: 20170606
  Receipt Date: 20170606
  Transmission Date: 20170830
  Serious: No
  Sender: FDA-Public Use
  Company Number: US-SA-2016SA182327

PATIENT
  Age: 73 Year
  Sex: Female

DRUGS (5)
  1. LANTUS SOLOSTAR [Suspect]
     Active Substance: INSULIN GLARGINE
     Indication: TYPE 2 DIABETES MELLITUS
     Dosage: DOSE: 13-14 UNITS
     Route: 065
  2. SOLOSTAR [Concomitant]
     Active Substance: DEVICE
     Dates: start: 2006
  3. LANTUS SOLOSTAR [Suspect]
     Active Substance: INSULIN GLARGINE
     Indication: TYPE 2 DIABETES MELLITUS
     Dosage: DOSE:29 UNIT(S)
     Route: 065
     Dates: start: 2006
  4. NOVOLOG [Concomitant]
     Active Substance: INSULIN ASPART
  5. SOLOSTAR [Concomitant]
     Active Substance: DEVICE

REACTIONS (1)
  - Weight decreased [Unknown]
